FAERS Safety Report 13155215 (Version 1)
Quarter: 2017Q1

REPORT INFORMATION
  Report Type: Spontaneous
  Country: US (occurrence: US)
  Receive Date: 20170126
  Receipt Date: 20170126
  Transmission Date: 20170428
  Serious: Yes (Other)
  Sender: FDA-Public Use
  Company Number: US-BRACCO-014175

PATIENT
  Age: 84 Year
  Sex: Male

DRUGS (2)
  1. ALL OTHER THERAPEUTIC PRODUCTS [Suspect]
     Active Substance: UNSPECIFIED INGREDIENT
     Indication: BACK PAIN
  2. BARIUM [Suspect]
     Active Substance: BARIUM
     Indication: X-RAY WITH CONTRAST UPPER GASTROINTESTINAL TRACT
     Route: 048

REACTIONS (1)
  - Barium impaction [Recovered/Resolved]
